FAERS Safety Report 21579450 (Version 1)
Quarter: 2022Q4

REPORT INFORMATION
  Report Type: Report from Study
  Country: AU (occurrence: AU)
  Receive Date: 20221110
  Receipt Date: 20221110
  Transmission Date: 20230113
  Serious: Yes (Hospitalization, Other)
  Sender: FDA-Public Use
  Company Number: AU-BRISTOL-MYERS SQUIBB COMPANY-2022-132892

PATIENT
  Age: 46 Year
  Sex: Male
  Weight: 94 kg

DRUGS (8)
  1. CREON [Concomitant]
     Active Substance: PANCRELIPASE AMYLASE\PANCRELIPASE LIPASE\PANCRELIPASE PROTEASE
     Indication: Product used for unknown indication
     Dosage: 1DF=3
     Route: 048
     Dates: start: 20220819
  2. SYMBICORT [Concomitant]
     Active Substance: BUDESONIDE\FORMOTEROL FUMARATE DIHYDRATE
     Indication: Asthma
     Dosage: 1DF=1
     Route: 055
     Dates: start: 1992
  3. VENTOLIN [Concomitant]
     Active Substance: ALBUTEROL SULFATE
     Indication: Product used for unknown indication
     Dosage: 1DF=1
     Route: 055
     Dates: start: 1992
  4. VITAMIN D [Concomitant]
     Active Substance: VITAMIN D NOS
     Indication: Prophylaxis
     Dosage: 1DF=1
     Route: 048
     Dates: start: 2016
  5. IRON [Concomitant]
     Active Substance: IRON
     Indication: Prophylaxis
     Dosage: 1DF=1
     Route: 048
     Dates: start: 2016
  6. VITAMINS [Concomitant]
     Active Substance: VITAMINS
     Indication: Prophylaxis
     Route: 048
     Dates: start: 2016
  7. INFLUENZA - FLUQUADRI [Concomitant]
     Indication: Product used for unknown indication
     Route: 030
     Dates: start: 20220505
  8. ENOXAPARIN SODIUM [Concomitant]
     Active Substance: ENOXAPARIN SODIUM
     Indication: Prophylaxis
     Route: 058
     Dates: start: 20221103, end: 20221103

REACTIONS (1)
  - Atrial fibrillation [Recovering/Resolving]

NARRATIVE: CASE EVENT DATE: 20221103
